FAERS Safety Report 18966594 (Version 2)
Quarter: 2021Q1

REPORT INFORMATION
  Report Type: Other
  Country: US (occurrence: US)
  Receive Date: 20210303
  Receipt Date: 20210324
  Transmission Date: 20210420
  Serious: Yes (Hospitalization)
  Sender: FDA-Public Use
  Company Number: US-NEUROCRINE BIOSCIENCES INC.-2021NBI00804

PATIENT

DRUGS (2)
  1. PRIMIDONE. [Concomitant]
     Active Substance: PRIMIDONE
     Dosage: 80 MILLIGRAM
     Dates: start: 20200616
  2. INGREZZA [Suspect]
     Active Substance: VALBENAZINE
     Indication: TARDIVE DYSKINESIA
     Dosage: 80 MILLIGRAM QD
     Route: 048
     Dates: start: 20200616

REACTIONS (1)
  - Muscular weakness [Unknown]
